FAERS Safety Report 8346249-7 (Version None)
Quarter: 2012Q2

REPORT INFORMATION
  Report Type: 
  Country: None (occurrence: None)
  Receive Date: 20120507
  Receipt Date: 20120425
  Transmission Date: 20120825
  Serious: Yes (Hospitalization)
  Sender: FDA-Public Use
  Company Number: UTC-018213

PATIENT
  Age: 66 Year
  Sex: Male
  Weight: 118.1 kg

DRUGS (2)
  1. REMODULIN [Suspect]
     Indication: PULMONARY ARTERIAL HYPERTENSION
     Dosage: 5.76 UG/KG (0.004 UG/KG,1 IN 1 MIN),INTRAVENOUS
     Route: 042
     Dates: start: 20120225
  2. REVATIO [Concomitant]

REACTIONS (3)
  - DYSPNOEA [None]
  - FLUID RETENTION [None]
  - CELLULITIS [None]
